FAERS Safety Report 6601388-3 (Version None)
Quarter: 2010Q1

REPORT INFORMATION
  Report Type: 
  Country: None (occurrence: None)
  Receive Date: 20100224
  Receipt Date: 20100224
  Transmission Date: 20100710
  Serious: Yes (Hospitalization)
  Sender: FDA-Public Use
  Company Number: None

PATIENT
  Sex: Female
  Weight: 68.9467 kg

DRUGS (1)
  1. AVASTIN [Suspect]

REACTIONS (3)
  - CARDIAC FAILURE CONGESTIVE [None]
  - ENTEROCOCCAL SEPSIS [None]
  - URINARY TRACT INFECTION [None]
